FAERS Safety Report 9727998 (Version 1)
Quarter: 2013Q4

REPORT INFORMATION
  Report Type: Spontaneous
  Country: US (occurrence: None)
  Receive Date: 20131203
  Receipt Date: 20131203
  Transmission Date: 20140711
  Serious: No
  Sender: FDA-Public Use
  Company Number: None

PATIENT
  Age: 56 Year
  Sex: Male
  Weight: 85.73 kg

DRUGS (2)
  1. ANDROGEL [Suspect]
     Indication: SEXUAL DYSFUNCTION
     Dosage: 2 PUMPS, APPLIED TO A SURFACE, USUALLY THE SKIN, ONE TO BID
     Route: 062
     Dates: start: 20130201, end: 20130331
  2. ANDROGEL [Suspect]
     Indication: ASTHENIA
     Dosage: 2 PUMPS, APPLIED TO A SURFACE, USUALLY THE SKIN, ONE TO BID
     Route: 062
     Dates: start: 20130201, end: 20130331

REACTIONS (2)
  - Local swelling [None]
  - Thrombosis [None]
